FAERS Safety Report 5680040-5 (Version None)
Quarter: 2008Q1

REPORT INFORMATION
  Report Type: 
  Country: None (occurrence: None)
  Receive Date: 20080325
  Receipt Date: 20080325
  Transmission Date: 20080703
  Serious: Yes (Other)
  Sender: FDA-Public Use
  Company Number: None

PATIENT
  Sex: Female

DRUGS (7)
  1. REVLIMID [Suspect]
     Indication: MULTIPLE MYELOMA
     Dosage: 15MG  DAILY X21D/28D  PO
     Route: 048
     Dates: start: 20071001, end: 20071101
  2. REVLIMID [Suspect]
     Indication: MULTIPLE MYELOMA
     Dosage: 15MG  DAILY X21D/28D  PO
     Route: 048
     Dates: start: 20080220
  3. REVLIMID [Suspect]
     Indication: MULTIPLE MYELOMA
     Dosage: 25MG  DAILY X21D/28D  PO
     Route: 048
     Dates: start: 20071226, end: 20080220
  4. AREDIA [Concomitant]
  5. DEXAMETHASONE TAB [Concomitant]
  6. ZOLPIDEM [Concomitant]
  7. LACTULOSE [Concomitant]

REACTIONS (7)
  - BURNING SENSATION [None]
  - HYPOAESTHESIA [None]
  - MUSCLE SPASMS [None]
  - NEUROPATHY PERIPHERAL [None]
  - NEUTROPENIA [None]
  - PARAESTHESIA ORAL [None]
  - RASH [None]
